FAERS Safety Report 24780187 (Version 1)
Quarter: 2024Q4

REPORT INFORMATION
  Report Type: Spontaneous
  Country: US (occurrence: US)
  Receive Date: 20241227
  Receipt Date: 20241227
  Transmission Date: 20250115
  Serious: No
  Sender: ROCHE
  Company Number: US-ROCHE-10000164675

PATIENT
  Sex: Female

DRUGS (4)
  1. XOLAIR PFS [Suspect]
     Active Substance: OMALIZUMAB
     Indication: Asthma
     Dosage: STRENGTH: 300MG/2ML
     Route: 058
     Dates: start: 202210
  2. XOLAIR PFS [Suspect]
     Active Substance: OMALIZUMAB
     Indication: Hidradenitis
     Dosage: STRENGTH: 75MG/0.5ML
     Route: 058
     Dates: start: 202210
  3. XOLAIR PFS [Suspect]
     Active Substance: OMALIZUMAB
     Indication: Psoriatic arthropathy
  4. BIMZELX [Concomitant]
     Active Substance: BIMEKIZUMAB-BKZX

REACTIONS (1)
  - Asthma [Unknown]
